FAERS Safety Report 11875064 (Version 4)
Quarter: 2016Q1

REPORT INFORMATION
  Report Type: Spontaneous
  Country: IT (occurrence: IT)
  Receive Date: 20151229
  Receipt Date: 20160204
  Transmission Date: 20160526
  Serious: Yes (Death)
  Sender: FDA-Public Use
  Company Number: IT-WATSON-2015-28602

PATIENT
  Age: 38 Year
  Sex: Male

DRUGS (5)
  1. ETHANOL [Interacting]
     Active Substance: ALCOHOL
     Indication: COMPLETED SUICIDE
     Dosage: UNK
     Route: 065
  2. ZOLPIDEM [Interacting]
     Active Substance: ZOLPIDEM\ZOLPIDEM TARTRATE
     Indication: COMPLETED SUICIDE
     Dosage: UNK
     Route: 065
  3. ALPRAZOLAM (UNKNOWN) [Suspect]
     Active Substance: ALPRAZOLAM
     Indication: COMPLETED SUICIDE
     Dosage: UNK
     Route: 065
  4. DELORAZEPAM [Interacting]
     Active Substance: DELORAZEPAM
     Indication: COMPLETED SUICIDE
     Dosage: UNK
     Route: 065
  5. TRIAZOLAM (UNKNOWN) [Interacting]
     Active Substance: TRIAZOLAM
     Indication: COMPLETED SUICIDE
     Dosage: UNK
     Route: 065

REACTIONS (2)
  - Toxicity to various agents [Fatal]
  - Drug interaction [Fatal]
